FAERS Safety Report 9914688 (Version 1)
Quarter: 2014Q1

REPORT INFORMATION
  Report Type: Report from Study
  Country: CA (occurrence: CA)
  Receive Date: 20140220
  Receipt Date: 20140220
  Transmission Date: 20141002
  Serious: Yes (Hospitalization)
  Sender: FDA-Public Use
  Company Number: CA-BRISTOL-MYERS SQUIBB COMPANY-20214839

PATIENT
  Age: 83 Year
  Sex: Female

DRUGS (9)
  1. ORENCIA [Suspect]
     Indication: RHEUMATOID ARTHRITIS
     Dosage: 1DF=750 UNIT NOS.05FEB14 INFUSION WAS CANCELLED
     Dates: start: 20100308
  2. PREDNISONE [Concomitant]
  3. PLAQUENIL [Concomitant]
  4. ATENOLOL [Concomitant]
  5. PANTOLOC [Concomitant]
  6. CARBOCAL [Concomitant]
  7. FOSAMAX [Concomitant]
  8. NORVASC [Concomitant]
  9. SUPEUDOL [Concomitant]

REACTIONS (3)
  - Asthenia [Unknown]
  - Malaise [Unknown]
  - Influenza [Unknown]
